FAERS Safety Report 22285504 (Version 13)
Quarter: 2024Q3

REPORT INFORMATION
  Report Type: Spontaneous
  Country: US (occurrence: US)
  Receive Date: 20230504
  Receipt Date: 20240923
  Transmission Date: 20241017
  Serious: Yes (Other)
  Sender: PFIZER
  Company Number: US-PFIZER INC-2018285435

PATIENT
  Age: 76 Year
  Sex: Female
  Weight: 56.7 kg

DRUGS (3)
  1. PREMARIN [Suspect]
     Active Substance: ESTROGENS, CONJUGATED
     Indication: Hot flush
     Dosage: 1.25 MG, CYCLIC (ONCE DAILY FOR A WEEK, TAKEN FOR 3 WEEK THEN NOT TAKEN FOR 1 WEEK)
  2. PREMARIN [Suspect]
     Active Substance: ESTROGENS, CONJUGATED
     Indication: Hyperhidrosis
     Dosage: 0.9 MG
  3. PREMARIN [Suspect]
     Active Substance: ESTROGENS, CONJUGATED
     Indication: Headache
     Dosage: 1.25 MG, 1X/DAY

REACTIONS (7)
  - Drug dependence [Unknown]
  - Abdominal discomfort [Unknown]
  - Oropharyngeal pain [Unknown]
  - Cerebral disorder [Unknown]
  - Memory impairment [Unknown]
  - Oropharyngeal discomfort [Unknown]
  - Product prescribing error [Unknown]
